FAERS Safety Report 24746196 (Version 3)
Quarter: 2025Q3

REPORT INFORMATION
  Report Type: Report from Study
  Country: US (occurrence: US)
  Receive Date: 20241218
  Receipt Date: 20250808
  Transmission Date: 20251020
  Serious: Yes (Other)
  Sender: UCB
  Company Number: US-UCBSA-2024065275

PATIENT
  Age: 20 Year
  Sex: Female
  Weight: 63.8 kg

DRUGS (3)
  1. FINTEPLA [Suspect]
     Active Substance: FENFLURAMINE
     Indication: Lennox-Gastaut syndrome
     Dates: start: 20230506
  2. FINTEPLA [Suspect]
     Active Substance: FENFLURAMINE
     Dosage: 5.4 MILLILITER, 2X/DAY (BID)
     Route: 048
     Dates: start: 20240529, end: 20240530
  3. FINTEPLA [Suspect]
     Active Substance: FENFLURAMINE

REACTIONS (3)
  - Tricuspid valve incompetence [Not Recovered/Not Resolved]
  - Mitral valve incompetence [Not Recovered/Not Resolved]
  - Pulmonary valve incompetence [Not Recovered/Not Resolved]

NARRATIVE: CASE EVENT DATE: 20241207
